FAERS Safety Report 23347590 (Version 1)
Quarter: 2023Q4

REPORT INFORMATION
  Report Type: Spontaneous
  Country: LT (occurrence: LT)
  Receive Date: 20231228
  Receipt Date: 20231228
  Transmission Date: 20240110
  Serious: Yes (Other)
  Sender: FDA-Public Use
  Company Number: LT-AMGEN-LTUSP2023227042

PATIENT
  Age: 66 Year
  Sex: Female

DRUGS (6)
  1. XGEVA [Suspect]
     Active Substance: DENOSUMAB
     Indication: Renal cell carcinoma
     Dosage: 120 MILLIGRAM
     Route: 065
  2. XGEVA [Suspect]
     Active Substance: DENOSUMAB
     Indication: Metastases to bone
  3. XGEVA [Suspect]
     Active Substance: DENOSUMAB
     Indication: Metastases to pelvis
  4. PAZOPANIB [Suspect]
     Active Substance: PAZOPANIB
     Indication: Renal cell carcinoma
     Dosage: 800 MILLIGRAM
     Route: 065
  5. PAZOPANIB [Suspect]
     Active Substance: PAZOPANIB
     Indication: Metastases to bone
  6. PAZOPANIB [Suspect]
     Active Substance: PAZOPANIB
     Indication: Metastases to pelvis

REACTIONS (4)
  - Metastases to nasal sinuses [Unknown]
  - Osteonecrosis of jaw [Unknown]
  - Impaired healing [Not Recovered/Not Resolved]
  - Tooth extraction [Unknown]
